FAERS Safety Report 9156574 (Version 1)
Quarter: 2013Q1

REPORT INFORMATION
  Report Type: Spontaneous
  Country: US (occurrence: None)
  Receive Date: 20130308
  Receipt Date: 20130308
  Transmission Date: 20140127
  Serious: No
  Sender: FDA-Public Use
  Company Number: None

PATIENT
  Age: 39 Year
  Sex: Male
  Weight: 74.84 kg

DRUGS (1)
  1. CREST PRO HEALTH MOUTHWASH 24 HOUR PROTECTION -L-22635395RD [Suspect]
     Dosage: 20ML BID  PO
     Route: 048
     Dates: start: 20130101, end: 20130306

REACTIONS (1)
  - Tooth discolouration [None]
